FAERS Safety Report 6235887-3 (Version None)
Quarter: 2009Q2

REPORT INFORMATION
  Report Type: 
  Country: None (occurrence: None)
  Receive Date: 20090619
  Receipt Date: 20090610
  Transmission Date: 20091009
  Serious: Yes (Hospitalization)
  Sender: FDA-Public Use
  Company Number: NZ-BAYER-200922855GPV

PATIENT
  Sex: Female
  Weight: 52 kg

DRUGS (1)
  1. MIRENA [Suspect]
     Indication: CONTRACEPTION
     Route: 015
     Dates: start: 20090311, end: 20090604

REACTIONS (3)
  - APPENDICITIS [None]
  - PELVIC INFECTION [None]
  - PNEUMOCOCCAL SEPSIS [None]
